FAERS Safety Report 7705779-9 (Version None)
Quarter: 2011Q3

REPORT INFORMATION
  Report Type: 
  Country: None (occurrence: None)
  Receive Date: 20110824
  Receipt Date: 20110824
  Transmission Date: 20111222
  Serious: No
  Sender: FDA-Public Use
  Company Number: None

PATIENT
  Sex: Male
  Weight: 70.2 kg

DRUGS (1)
  1. SEROQUEL [Suspect]
     Dosage: 25 MG
     Route: 048
     Dates: start: 20110816, end: 20110820

REACTIONS (4)
  - INTERNATIONAL NORMALISED RATIO INCREASED [None]
  - ASPARTATE AMINOTRANSFERASE INCREASED [None]
  - BLOOD ALKALINE PHOSPHATASE INCREASED [None]
  - ALANINE AMINOTRANSFERASE INCREASED [None]
